FAERS Safety Report 23415887 (Version 1)
Quarter: 2024Q1

REPORT INFORMATION
  Report Type: Spontaneous
  Country: US (occurrence: None)
  Receive Date: 20240117
  Receipt Date: 20240117
  Transmission Date: 20240409
  Serious: No
  Sender: FDA-Public Use
  Company Number: None

PATIENT
  Sex: 0

DRUGS (1)
  1. ASTELIN [Suspect]
     Active Substance: AZELASTINE HYDROCHLORIDE

REACTIONS (4)
  - Heart rate increased [None]
  - Dyspnoea [None]
  - Dysphagia [None]
  - Dry mouth [None]
